FAERS Safety Report 13986656 (Version 2)
Quarter: 2017Q3

REPORT INFORMATION
  Report Type: Report from Study
  Country: CA (occurrence: CA)
  Receive Date: 20170919
  Receipt Date: 20170928
  Transmission Date: 20171128
  Serious: Yes (Other)
  Sender: FDA-Public Use
  Company Number: CA-GLAXOSMITHKLINE-CA2017GSK144826

PATIENT
  Sex: Female

DRUGS (1)
  1. SALBUTAMOL SULPHATE [Suspect]
     Active Substance: ALBUTEROL SULFATE
     Indication: PRODUCT USED FOR UNKNOWN INDICATION
     Dosage: UNK
     Dates: start: 1983

REACTIONS (11)
  - Back injury [Recovered/Resolved with Sequelae]
  - Post-traumatic stress disorder [Unknown]
  - Hiatus hernia [Unknown]
  - Glaucoma [Unknown]
  - Asthma [Unknown]
  - Anal pruritus [Unknown]
  - Cataract [Unknown]
  - Chronic spontaneous urticaria [Unknown]
  - Musculoskeletal disorder [Unknown]
  - Vulvovaginal pruritus [Unknown]
  - Panic attack [Unknown]

NARRATIVE: CASE EVENT DATE: 1987
